FAERS Safety Report 11522515 (Version 1)
Quarter: 2015Q3

REPORT INFORMATION
  Report Type: Spontaneous
  Country: US (occurrence: US)
  Receive Date: 20150918
  Receipt Date: 20150918
  Transmission Date: 20151125
  Serious: No
  Sender: FDA-Public Use
  Company Number: US-ROCHE-707548

PATIENT
  Sex: Male

DRUGS (3)
  1. PEGASYS [Suspect]
     Active Substance: PEGINTERFERON ALFA-2A
     Indication: HEPATITIS C
     Route: 058
  2. RIBAVIRIN. [Suspect]
     Active Substance: RIBAVIRIN
     Indication: HEPATITIS C
     Dosage: DIVIDED DOSES, FOR A PLANNED THERAPY OF 12 MONTHS.
     Route: 048
  3. PEGASYS [Suspect]
     Active Substance: PEGINTERFERON ALFA-2A
     Dosage: FOR A PLANNED THERAPY OF 12 MONTHS.
     Route: 058

REACTIONS (6)
  - Blood glucose fluctuation [Unknown]
  - No therapeutic response [Unknown]
  - Tremor [Unknown]
  - Tremor [Recovered/Resolved]
  - Blood glucose decreased [Unknown]
  - Anaemia [Recovered/Resolved]
